FAERS Safety Report 9728587 (Version 1)
Quarter: 2013Q4

REPORT INFORMATION
  Report Type: Spontaneous
  Country: GB (occurrence: None)
  Receive Date: 20131202
  Receipt Date: 20131202
  Transmission Date: 20140711
  Serious: Yes (Other)
  Sender: FDA-Public Use
  Company Number: CL-540-2013

PATIENT
  Age: 16 Year
  Sex: Male

DRUGS (3)
  1. HALOPERIDOL [Suspect]
     Indication: DYSTONIA
     Dosage: 2.5 MG ONCE INJECTION
  2. HALOPERIDOL [Suspect]
     Indication: PSYCHOTIC DISORDER
     Dosage: 2.5 MG ONCE INJECTION
  3. LEVOMEPROMAZINE [Suspect]
     Dosage: 37.5MG/DAY UNK INJECTION

REACTIONS (2)
  - Neuroleptic malignant syndrome [None]
  - Toxicity to various agents [None]
